FAERS Safety Report 6103638-9 (Version None)
Quarter: 2009Q1

REPORT INFORMATION
  Report Type: 
  Country: None (occurrence: None)
  Receive Date: 20090227
  Receipt Date: 20090224
  Transmission Date: 20090719
  Serious: Yes (Death)
  Sender: FDA-Public Use
  Company Number: 2009-192100-NL

PATIENT
  Age: 38 Year
  Sex: Female

DRUGS (5)
  1. MARVELON [Suspect]
     Dosage: 1 DF ORAL
     Route: 048
     Dates: end: 20080801
  2. MARVELON [Suspect]
     Dosage: 1 DF ORAL
     Route: 048
     Dates: start: 20080719
  3. AMEZINIUM METILSULFATE [Concomitant]
  4. ALPRAZOLAM [Concomitant]
  5. FERROUS SULFATE TAB [Concomitant]

REACTIONS (3)
  - ANAEMIA [None]
  - METRORRHAGIA [None]
  - OEDEMA PERIPHERAL [None]
